FAERS Safety Report 14479927 (Version 1)
Quarter: 2018Q1

REPORT INFORMATION
  Report Type: Spontaneous
  Country: US (occurrence: US)
  Receive Date: 20180201
  Receipt Date: 20180201
  Transmission Date: 20180509
  Serious: Yes (Other)
  Sender: FDA-Public Use
  Company Number: None

PATIENT

DRUGS (2)
  1. CALCIUM GLUCONATE. [Suspect]
     Active Substance: CALCIUM GLUCONATE
  2. SODIUM CHLORIDE 0.9% [Suspect]
     Active Substance: SODIUM CHLORIDE

REACTIONS (4)
  - Infusion site inflammation [None]
  - Infusion site oedema [None]
  - Infusion site extravasation [None]
  - Infusion related reaction [None]
